FAERS Safety Report 8769700 (Version 3)
Quarter: 2012Q4

REPORT INFORMATION
  Report Type: Report from Study
  Country: JP (occurrence: JP)
  Receive Date: 20120905
  Receipt Date: 20121211
  Transmission Date: 20130627
  Serious: Yes (Hospitalization)
  Sender: FDA-Public Use
  Company Number: JP-VERTEX PHARMACEUTICAL INC.-AE-2012-010090

PATIENT
  Age: 63 Year
  Sex: Female

DRUGS (14)
  1. RIBAVIRIN [Suspect]
     Indication: CHRONIC HEPATITIS C
     Dosage: 600 mg, qd
     Route: 048
     Dates: start: 20120526, end: 20120615
  2. RIBAVIRIN [Suspect]
     Dosage: 400 mg, qd
     Route: 048
     Dates: start: 20120616, end: 20120630
  3. PEGINTERFERON ALFA-2B [Suspect]
     Indication: CHRONIC HEPATITIS C
     Dosage: 100 ?g/kg, qw
     Route: 058
     Dates: start: 20120526, end: 20120630
  4. PEGINTERFERON ALFA-2B [Suspect]
     Dosage: 50/ 83.4 ug/ Kg, qw
     Route: 058
     Dates: start: 20120630, end: 20120721
  5. DIOVAN [Concomitant]
     Dosage: 40 mg, qd
     Route: 048
     Dates: end: 20120921
  6. TENORMIN [Concomitant]
     Dosage: 25 mg, qd
     Route: 048
     Dates: end: 20120904
  7. RIBALL [Concomitant]
     Dosage: 200 mg, qd
     Route: 048
     Dates: end: 20120826
  8. RINDERON-VG [Concomitant]
     Dosage: 10 g, qd
     Route: 061
     Dates: start: 20120616, end: 20121004
  9. ATMIPHEN [Concomitant]
     Dosage: 800 mg, qd
     Route: 048
     Dates: end: 20120906
  10. LASIX                              /00032601/ [Concomitant]
  11. ALDACTONE A [Concomitant]
     Route: 048
  12. FOLIAMIN [Concomitant]
  13. POSTERISAN                         /00028601/ [Concomitant]
     Route: 061
  14. VX-950 (TELAPREVIR) [Suspect]
     Indication: CHRONIC HEPATITIS C
     Dosage: 1500 mg, qd
     Route: 048
     Dates: start: 20120526, end: 20120630

REACTIONS (3)
  - Generalised erythema [Not Recovered/Not Resolved]
  - Diverticulitis intestinal haemorrhagic [Recovered/Resolved]
  - Haematochezia [Not Recovered/Not Resolved]
